FAERS Safety Report 16330147 (Version 1)
Quarter: 2019Q2

REPORT INFORMATION
  Report Type: Report from Study
  Country: FR (occurrence: FR)
  Receive Date: 20190520
  Receipt Date: 20190520
  Transmission Date: 20190711
  Serious: Yes (Other)
  Sender: FDA-Public Use
  Company Number: FR-SUN PHARMACEUTICAL INDUSTRIES LTD-2019RR-208023

PATIENT
  Age: 71 Year
  Sex: Male

DRUGS (3)
  1. RITUXIMAB. [Suspect]
     Active Substance: RITUXIMAB
     Indication: CENTRAL NERVOUS SYSTEM LYMPHOMA
     Dosage: 375 MILLIGRAM/SQ. METER, AT D1 AND D15, TWO CYCLES, AS SECOND LINE OF TREATMENT
     Route: 065
  2. OXALIPLATIN. [Suspect]
     Active Substance: OXALIPLATIN
     Indication: CENTRAL NERVOUS SYSTEM LYMPHOMA
     Dosage: 100 MILLIGRAM/SQ. METER, AT D1 AND D15, TWO CYCLES, AS SECOND LINE OF TREATMENT
     Route: 065
  3. GEMCITABINE [Suspect]
     Active Substance: GEMCITABINE\GEMCITABINE HYDROCHLORIDE
     Indication: CENTRAL NERVOUS SYSTEM LYMPHOMA
     Dosage: 1000 MILLIGRAM/SQ. METER, AT D1 AND D15, TWO CYCLES, AS SECOND LINE OF TREATMENT
     Route: 065

REACTIONS (1)
  - Disease progression [Unknown]
